FAERS Safety Report 5841283-0 (Version None)
Quarter: 2008Q3

REPORT INFORMATION
  Report Type: 
  Country: None (occurrence: None)
  Receive Date: 20080731
  Receipt Date: 20080511
  Transmission Date: 20090109
  Serious: No
  Sender: FDA-Public Use
  Company Number: US200805002526

PATIENT
  Age: 39 Year
  Sex: Male

DRUGS (4)
  1. BYETTA [Suspect]
     Indication: TYPE 2 DIABETES MELLITUS
     Dosage: 10 UG, 2/D, SUBCUTANEOUS
     Route: 058
     Dates: start: 20070901
  2. METFORMIN HCL [Concomitant]
  3. GLIPIZIDE [Concomitant]
  4. AVANDIA [Concomitant]

REACTIONS (7)
  - ASTHENIA [None]
  - BLOOD GLUCOSE DECREASED [None]
  - BLOOD GLUCOSE INCREASED [None]
  - COLD SWEAT [None]
  - DIZZINESS [None]
  - FEELING JITTERY [None]
  - INJECTION SITE PAIN [None]
